APPROVED DRUG PRODUCT: NORVIR
Active Ingredient: RITONAVIR
Strength: 80MG/ML
Dosage Form/Route: SOLUTION;ORAL
Application: N020659 | Product #001
Applicant: ABBVIE INC
Approved: Mar 1, 1996 | RLD: Yes | RS: No | Type: DISCN